FAERS Safety Report 6566828-7 (Version None)
Quarter: 2010Q1

REPORT INFORMATION
  Report Type: 
  Country: None (occurrence: None)
  Receive Date: 20100202
  Receipt Date: 20100127
  Transmission Date: 20100710
  Serious: Yes (Hospitalization, Other)
  Sender: FDA-Public Use
  Company Number: A0841985A

PATIENT
  Age: 72 Year
  Sex: Female

DRUGS (8)
  1. HYCAMTIN [Suspect]
     Indication: OVARIAN CANCER
     Dosage: 1MG SEE DOSAGE TEXT
     Route: 042
     Dates: start: 20090301, end: 20100101
  2. PRILOSEC [Concomitant]
  3. TYLENOL (CAPLET) [Concomitant]
  4. BENADRYL [Concomitant]
  5. ATROPINE [Concomitant]
  6. DOCUSATE [Concomitant]
  7. PHENERGAN HCL [Concomitant]
  8. PLAQUENIL [Concomitant]

REACTIONS (1)
  - DYSPNOEA [None]
